FAERS Safety Report 12595994 (Version 1)
Quarter: 2016Q3

REPORT INFORMATION
  Report Type: Report from Study
  Country: NE (occurrence: NE)
  Receive Date: 20160726
  Receipt Date: 20160726
  Transmission Date: 20161109
  Serious: Yes (Death, Hospitalization, Other)
  Sender: FDA-Public Use
  Company Number: PHHY2013NE091196

PATIENT
  Sex: Male

DRUGS (3)
  1. GLIVEC [Suspect]
     Active Substance: IMATINIB MESYLATE
     Indication: CHRONIC MYELOID LEUKAEMIA
     Dosage: 400 MG, UNK
     Route: 065
  2. SPRYCEL [Suspect]
     Active Substance: DASATINIB
     Indication: PRODUCT USED FOR UNKNOWN INDICATION
     Dosage: UNK
     Route: 065
  3. GLIVEC [Suspect]
     Active Substance: IMATINIB MESYLATE
     Dosage: 600 MG, UNK
     Route: 065

REACTIONS (11)
  - Anaemia [Fatal]
  - Chronic myeloid leukaemia [Unknown]
  - Pyrexia [Fatal]
  - Pulmonary mass [Fatal]
  - Bacterial infection [Unknown]
  - Hypoglycaemia [Fatal]
  - Infection parasitic [Unknown]
  - Asthenia [Unknown]
  - Therapy non-responder [Unknown]
  - Hypovolaemic shock [Fatal]
  - Hepatic failure [Fatal]
